FAERS Safety Report 16894637 (Version 13)
Quarter: 2023Q2

REPORT INFORMATION
  Report Type: Spontaneous
  Country: US (occurrence: US)
  Receive Date: 20191008
  Receipt Date: 20230605
  Transmission Date: 20230722
  Serious: No
  Sender: FDA-Public Use
  Company Number: US-PFIZER INC-2019431923

PATIENT
  Age: 74 Year
  Sex: Female
  Weight: 63.492 kg

DRUGS (1)
  1. PREMARIN [Suspect]
     Active Substance: ESTROGENS, CONJUGATED
     Indication: Urinary tract infection
     Dosage: 0.5 G, 2X/WEEK (1/2 GRAM TWICE A WEEK)
     Dates: start: 201810

REACTIONS (2)
  - Off label use [Unknown]
  - Memory impairment [Recovered/Resolved]
